FAERS Safety Report 11168456 (Version 1)
Quarter: 2015Q2

REPORT INFORMATION
  Report Type: Spontaneous
  Country: VE (occurrence: VE)
  Receive Date: 20150605
  Receipt Date: 20150605
  Transmission Date: 20150821
  Serious: Yes (Disabling)
  Sender: FDA-Public Use
  Company Number: VE-GLAXOSMITHKLINE-VE2015GSK075130

PATIENT
  Sex: Female
  Weight: 54 kg

DRUGS (1)
  1. LAMICTAL [Suspect]
     Active Substance: LAMOTRIGINE
     Indication: BIPOLAR DISORDER
     Dosage: 100 MG, BID
     Route: 048
     Dates: start: 2007, end: 201504

REACTIONS (4)
  - Agoraphobia [Unknown]
  - Anxiety [Unknown]
  - Apathy [Unknown]
  - Memory impairment [Unknown]

NARRATIVE: CASE EVENT DATE: 20150522
